FAERS Safety Report 8204255-7 (Version None)
Quarter: 2012Q1

REPORT INFORMATION
  Report Type: 
  Country: None (occurrence: None)
  Receive Date: 20120313
  Receipt Date: 20120306
  Transmission Date: 20120608
  Serious: Yes (Hospitalization)
  Sender: FDA-Public Use
  Company Number: JP-SANOFI-AVENTIS-2012SA011121

PATIENT
  Age: 61 Year
  Sex: Male
  Weight: 60 kg

DRUGS (13)
  1. LANTUS [Suspect]
     Dosage: DOSE:17 UNIT(S)
     Route: 065
     Dates: start: 20100422
  2. LANTUS [Suspect]
     Dosage: DOSE:10 UNIT(S)
     Route: 065
     Dates: start: 20120105
  3. CALCIUM CHANNEL BLOCKERS [Concomitant]
  4. HMG COA REDUCTASE INHIBITORS [Concomitant]
  5. NOVORAPID [Suspect]
     Indication: BLOOD GLUCOSE ABNORMAL
     Route: 065
     Dates: start: 20081014
  6. BETA BLOCKING AGENTS [Concomitant]
  7. PLATELET AGGREGATION INHIBITORS [Concomitant]
  8. LANTUS [Suspect]
     Indication: BLOOD GLUCOSE ABNORMAL
     Route: 065
     Dates: start: 20081014
  9. ACE INHIBITOR NOS [Concomitant]
  10. NOVORAPID [Suspect]
     Dosage: DOSE: 10 IN THE MORNING, AFTERNOON AND EVENING DOSE:10 UNIT(S)
     Route: 065
     Dates: start: 20120105
  11. MICARDIS [Concomitant]
  12. NOVORAPID [Suspect]
     Dosage: DOSE: 8 IN THE MORNING, AFTERNOON AND EVENING DOSE:8 UNIT(S)
     Route: 065
     Dates: start: 20100422
  13. ASPIRIN [Concomitant]

REACTIONS (1)
  - RECTAL CANCER RECURRENT [None]
